FAERS Safety Report 8336798 (Version 2)
Quarter: 2013Q4

REPORT INFORMATION
  Report Type: Spontaneous
  Country: US (occurrence: US)
  Receive Date: 20120113
  Receipt Date: 20131029
  Transmission Date: 20140711
  Serious: Yes (Other)
  Sender: FDA-Public Use
  Company Number: US-ROCHE-794242

PATIENT
  Sex: Male
  Weight: 147.55 kg

DRUGS (2)
  1. ACCUTANE [Suspect]
     Indication: ACNE
     Route: 065
     Dates: start: 1997, end: 2000
  2. ACCUTANE [Suspect]
     Route: 065
     Dates: start: 19980129, end: 199807

REACTIONS (4)
  - Inflammatory bowel disease [Unknown]
  - Hypertension [Unknown]
  - Dry skin [Unknown]
  - Dry eye [Unknown]
